FAERS Safety Report 25110052 (Version 3)
Quarter: 2025Q2

REPORT INFORMATION
  Report Type: Report from Study
  Country: CA (occurrence: CA)
  Receive Date: 20250324
  Receipt Date: 20250618
  Transmission Date: 20250717
  Serious: Yes (Other)
  Sender: ABBVIE
  Company Number: CA-ABBVIE-6186284

PATIENT
  Age: 38 Year
  Sex: Female

DRUGS (1)
  1. SKYRIZI [Suspect]
     Active Substance: RISANKIZUMAB-RZAA
     Indication: Crohn^s disease
     Dosage: INJECT 360MG SUBCUTANEOUSLY ONCE EVERY 8 WEEKS
     Route: 058
     Dates: start: 20241017

REACTIONS (4)
  - Ileostomy [Unknown]
  - Surgery [Recovered/Resolved]
  - Intestinal resection [Unknown]
  - General symptom [Recovered/Resolved]

NARRATIVE: CASE EVENT DATE: 20250101
